FAERS Safety Report 10908659 (Version 1)
Quarter: 2015Q1

REPORT INFORMATION
  Report Type: Spontaneous
  Country: CN (occurrence: CN)
  Receive Date: 20150312
  Receipt Date: 20150312
  Transmission Date: 20150721
  Serious: Yes (Hospitalization, Other)
  Sender: FDA-Public Use
  Company Number: CN-PFIZER INC-2015087162

PATIENT
  Age: 33 Year
  Sex: Male
  Weight: 72.5 kg

DRUGS (5)
  1. MEDROL [Suspect]
     Active Substance: METHYLPREDNISOLONE
     Dosage: 32 MG, 1X/DAY
     Route: 048
     Dates: start: 20121213, end: 20121226
  2. MEDROL [Suspect]
     Active Substance: METHYLPREDNISOLONE
     Indication: GLOMERULONEPHRITIS CHRONIC
     Dosage: 40 MG, 1X/DAY
     Route: 048
     Dates: start: 20121013, end: 20121212
  3. RAMIPRIL. [Concomitant]
     Active Substance: RAMIPRIL
  4. MEDROL [Suspect]
     Active Substance: METHYLPREDNISOLONE
     Dosage: 28 MG, 1X/DAY
     Route: 048
     Dates: start: 20121227, end: 20130109
  5. MEDROL [Suspect]
     Active Substance: METHYLPREDNISOLONE
     Dosage: 24 MG, 1X/DAY
     Route: 048
     Dates: start: 20130110, end: 20130113

REACTIONS (8)
  - Pneumomediastinum [Recovering/Resolving]
  - Pharyngitis [Recovering/Resolving]
  - Tracheitis [Recovering/Resolving]
  - Pneumothorax [Recovering/Resolving]
  - Pneumonia cytomegaloviral [Recovering/Resolving]
  - Pneumonia viral [Recovering/Resolving]
  - Pneumocystis jirovecii pneumonia [Recovering/Resolving]
  - Subcutaneous emphysema [Recovering/Resolving]

NARRATIVE: CASE EVENT DATE: 20130105
